FAERS Safety Report 9505140 (Version 1)
Quarter: 2013Q3

REPORT INFORMATION
  Report Type: Spontaneous
  Country: GB (occurrence: GB)
  Receive Date: 20130906
  Receipt Date: 20130906
  Transmission Date: 20140515
  Serious: Yes (Hospitalization)
  Sender: FDA-Public Use
  Company Number: GB-009507513-1309GBR002289

PATIENT
  Sex: Female

DRUGS (3)
  1. DEXAMETHASONE 4MG/ML INJECTION [Suspect]
     Indication: PLASMA CELL MYELOMA
     Dosage: UNK
     Route: 065
  2. CC-4047 [Suspect]
     Indication: PLASMA CELL MYELOMA
     Dosage: UNK
     Route: 048
  3. CLARITHROMYCIN [Concomitant]
     Indication: LOWER RESPIRATORY TRACT INFECTION

REACTIONS (1)
  - Lower respiratory tract infection [Unknown]
